FAERS Safety Report 16614150 (Version 3)
Quarter: 2019Q3

REPORT INFORMATION
  Report Type: Report from Study
  Country: None (occurrence: US)
  Receive Date: 20190723
  Receipt Date: 20190916
  Transmission Date: 20191004
  Serious: Yes (Other)
  Sender: FDA-Public Use
  Company Number: US-ABBVIE-19K-163-2860565-00

PATIENT
  Sex: Female
  Weight: 88.98 kg

DRUGS (2)
  1. CLONAZEPAM. [Concomitant]
     Active Substance: CLONAZEPAM
     Indication: ANXIETY
  2. HUMIRA [Suspect]
     Active Substance: ADALIMUMAB
     Indication: PSORIASIS
     Route: 058
     Dates: start: 201805, end: 201905

REACTIONS (6)
  - Renal failure [Recovering/Resolving]
  - Constipation [Recovered/Resolved]
  - Blood pressure increased [Recovering/Resolving]
  - Gastrooesophageal reflux disease [Recovered/Resolved]
  - Eczema [Recovering/Resolving]
  - Abdominal distension [Recovering/Resolving]
